FAERS Safety Report 16759635 (Version 1)
Quarter: 2019Q3

REPORT INFORMATION
  Report Type: Spontaneous
  Country: JP (occurrence: JP)
  Receive Date: 20190830
  Receipt Date: 20190830
  Transmission Date: 20191005
  Serious: Yes (Hospitalization)
  Sender: FDA-Public Use
  Company Number: JP-PFIZER INC-2019292531

PATIENT
  Age: 74 Year
  Sex: Male

DRUGS (5)
  1. CHAMPIX [Suspect]
     Active Substance: VARENICLINE TARTRATE
     Dosage: 1.0, 2X/DAY
     Dates: start: 20190709, end: 20190711
  2. CHAMPIX [Suspect]
     Active Substance: VARENICLINE TARTRATE
     Dosage: 0.5, 2X/DAY
     Route: 048
     Dates: start: 20190627, end: 20190630
  3. CHAMPIX [Suspect]
     Active Substance: VARENICLINE TARTRATE
     Dosage: 1.0, 2X/DAY
     Route: 048
     Dates: start: 20190701, end: 20190701
  4. CHAMPIX [Suspect]
     Active Substance: VARENICLINE TARTRATE
     Indication: SMOKING CESSATION THERAPY
     Dosage: 0.5, 1X/DAY
     Route: 048
     Dates: start: 20190624, end: 20190626
  5. CHAMPIX [Suspect]
     Active Substance: VARENICLINE TARTRATE
     Dosage: 0.5, 2X/DAY
     Route: 048
     Dates: start: 20190708, end: 20190708

REACTIONS (7)
  - Physical deconditioning [Recovered/Resolved]
  - Product prescribing error [Unknown]
  - Sepsis [Recovered/Resolved]
  - Wrong technique in product usage process [Unknown]
  - Nausea [Recovered/Resolved]
  - Nightmare [Recovered/Resolved]
  - Palpitations [Recovered/Resolved]

NARRATIVE: CASE EVENT DATE: 201907
